FAERS Safety Report 24864639 (Version 1)
Quarter: 2025Q1

REPORT INFORMATION
  Report Type: Spontaneous
  Country: GB (occurrence: GB)
  Receive Date: 20250120
  Receipt Date: 20250120
  Transmission Date: 20250408
  Serious: Yes (Other)
  Sender: ACCORD
  Company Number: None

PATIENT
  Age: 58 Year
  Sex: Male

DRUGS (21)
  1. APIXABAN [Suspect]
     Active Substance: APIXABAN
     Indication: Product used for unknown indication
  2. SODIUM CHLORIDE [Concomitant]
     Active Substance: SODIUM CHLORIDE
  3. SERTRALINE [Concomitant]
     Active Substance: SERTRALINE HYDROCHLORIDE
  4. IPRATROPIUM BROMIDE [Concomitant]
     Active Substance: IPRATROPIUM BROMIDE
  5. LORAZEPAM [Concomitant]
     Active Substance: LORAZEPAM
  6. FLUCLOXACILLIN [Concomitant]
     Active Substance: FLUCLOXACILLIN
  7. NICOTINE [Concomitant]
     Active Substance: NICOTINE
  8. BISOPROLOL [Concomitant]
     Active Substance: BISOPROLOL
  9. FOLIC ACID [Concomitant]
     Active Substance: FOLIC ACID
  10. ACETYLCYSTEINE [Concomitant]
     Active Substance: ACETYLCYSTEINE
  11. BECLOMETASONE, FORMOTEROL, GLYCOPYRRONIUM [Concomitant]
  12. LACTULOSE [Concomitant]
     Active Substance: LACTULOSE
  13. METHADONE [Concomitant]
     Active Substance: METHADONE HYDROCHLORIDE
  14. ACETAMINOPHEN [Concomitant]
     Active Substance: ACETAMINOPHEN
  15. MORPHINE [Concomitant]
     Active Substance: MORPHINE
  16. BUMETANIDE [Concomitant]
     Active Substance: BUMETANIDE
  17. AZITHROMYCIN [Concomitant]
     Active Substance: AZITHROMYCIN
  18. SENNA [Concomitant]
     Active Substance: SENNOSIDES
  19. AMLODIPINE [Concomitant]
     Active Substance: AMLODIPINE BESYLATE
  20. ALBUTEROL [Concomitant]
     Active Substance: ALBUTEROL
  21. MIRTAZAPINE [Concomitant]
     Active Substance: MIRTAZAPINE

REACTIONS (1)
  - Pulmonary embolism [Not Recovered/Not Resolved]

NARRATIVE: CASE EVENT DATE: 20241009
